FAERS Safety Report 5347019-4 (Version None)
Quarter: 2007Q2

REPORT INFORMATION
  Report Type: 
  Country: None (occurrence: None)
  Receive Date: 20070604
  Receipt Date: 20070521
  Transmission Date: 20071010
  Serious: Yes (Other)
  Sender: FDA-Public Use
  Company Number: CHYN2007AU01957

PATIENT
  Age: 71 Year
  Sex: Female

DRUGS (4)
  1. ALPHAPHARM QUITX (NCH) (NICOTINE) TRANS-THERAPEUTIC-SYSTEM [Suspect]
     Indication: SMOKING CESSATION THERAPY
     Dosage: 21 MG, TRANSDERMAL
     Route: 062
     Dates: end: 20070521
  2. MORPHINE [Concomitant]
  3. CARDIZEM (DILTIAZEM HDYROCHLORIDE) [Concomitant]
  4. MOGADON (NITRAZEPAM) [Concomitant]

REACTIONS (3)
  - BLISTER [None]
  - HYPERSENSITIVITY [None]
  - RASH PRURITIC [None]
